FAERS Safety Report 16969216 (Version 1)
Quarter: 2019Q4

REPORT INFORMATION
  Report Type: Spontaneous
  Country: DE (occurrence: DE)
  Receive Date: 20191029
  Receipt Date: 20191029
  Transmission Date: 20200122
  Serious: Yes (Other)
  Sender: FDA-Public Use
  Company Number: DE-ROCHE-2448380

PATIENT
  Sex: Female

DRUGS (1)
  1. MABTHERA [Suspect]
     Active Substance: RITUXIMAB
     Indication: POLYARTHRITIS
     Route: 065
     Dates: start: 2014

REACTIONS (1)
  - Pyoderma gangrenosum [Not Recovered/Not Resolved]
